FAERS Safety Report 9729097 (Version 1)
Quarter: 2013Q4

REPORT INFORMATION
  Report Type: Spontaneous
  Country: DE (occurrence: DE)
  Receive Date: 20131204
  Receipt Date: 20131204
  Transmission Date: 20140711
  Serious: Yes (Hospitalization, Congenital Anomaly)
  Sender: FDA-Public Use
  Company Number: GXKR2013DE003708

PATIENT
  Sex: 0

DRUGS (3)
  1. OMEPRAZOL [Suspect]
     Indication: ABDOMINAL PAIN UPPER
     Dosage: MATERNAL DOSE: 20 MG/DAY
     Route: 064
     Dates: start: 20090205, end: 20090208
  2. OMEPRAZOL [Suspect]
     Dosage: MATERNAL DOSE: 40 MG/DAY
     Route: 064
     Dates: start: 20090209, end: 20090213
  3. FOLSAEURE [Concomitant]
     Indication: PROPHYLAXIS OF NEURAL TUBE DEFECT
     Dosage: MATERNAL DOSE: 0.4 [MG/D ]
     Route: 064

REACTIONS (4)
  - Coarctation of the aorta [Recovered/Resolved with Sequelae]
  - Patent ductus arteriosus [Unknown]
  - Atrial septal defect [Unknown]
  - Bicuspid aortic valve [Not Recovered/Not Resolved]
